FAERS Safety Report 9213216 (Version 2)
Quarter: 2013Q3

REPORT INFORMATION
  Report Type: Spontaneous
  Country: GB (occurrence: GB)
  Receive Date: 20130405
  Receipt Date: 20130729
  Transmission Date: 20140515
  Serious: Yes (Disabling)
  Sender: FDA-Public Use
  Company Number: GB-JNJFOC-20130318175

PATIENT
  Age: 43 Year
  Sex: Female
  Weight: 75 kg

DRUGS (1)
  1. STELARA [Suspect]
     Indication: PSORIASIS
     Route: 058
     Dates: start: 201111, end: 201302

REACTIONS (7)
  - Cerebral infarction [Recovering/Resolving]
  - Aphasia [Recovering/Resolving]
  - Left ventricular hypertrophy [Unknown]
  - Antiphospholipid antibodies positive [Unknown]
  - Mitral valve incompetence [Unknown]
  - Posture abnormal [Recovering/Resolving]
  - Syncope [Recovering/Resolving]
